FAERS Safety Report 15229154 (Version 1)
Quarter: 2018Q3

REPORT INFORMATION
  Report Type: Spontaneous
  Country: US (occurrence: US)
  Receive Date: 20180801
  Receipt Date: 20180801
  Transmission Date: 20181010
  Serious: No
  Sender: FDA-Public Use
  Company Number: US-009507513-1807USA013159

PATIENT
  Sex: Female
  Weight: 2.49 kg

DRUGS (3)
  1. ZIDOVUDINE. [Suspect]
     Active Substance: ZIDOVUDINE
  2. ISENTRESS [Suspect]
     Active Substance: RALTEGRAVIR POTASSIUM
  3. LAMIVUDINE AND ZIDOVUDINE [Suspect]
     Active Substance: LAMIVUDINE\ZIDOVUDINE

REACTIONS (1)
  - Small for dates baby [Unknown]
